FAERS Safety Report 21170860 (Version 1)
Quarter: 2022Q3

REPORT INFORMATION
  Report Type: Report from Study
  Country: FR (occurrence: FR)
  Receive Date: 20220804
  Receipt Date: 20220804
  Transmission Date: 20221027
  Serious: Yes (Hospitalization)
  Sender: FDA-Public Use
  Company Number: FR-PFIZER INC-PV202200031641

PATIENT
  Age: 73 Year
  Sex: Female
  Weight: 50 kg

DRUGS (13)
  1. INOTUZUMAB OZOGAMICIN [Suspect]
     Active Substance: INOTUZUMAB OZOGAMICIN
     Dosage: INDUCTION
     Dates: start: 20201124, end: 20220412
  2. INOTUZUMAB OZOGAMICIN [Suspect]
     Active Substance: INOTUZUMAB OZOGAMICIN
     Dosage: MAINTENANCE
  3. METHOTREXATE SODIUM [Suspect]
     Active Substance: METHOTREXATE SODIUM
     Dosage: INDUCTION
     Route: 048
     Dates: start: 20210720, end: 20220412
  4. METHOTREXATE SODIUM [Suspect]
     Active Substance: METHOTREXATE SODIUM
     Dosage: MAINTENANCE
  5. CYTARABINE [Suspect]
     Active Substance: CYTARABINE
     Dosage: INDUCTION
     Dates: end: 20220412
  6. CYTARABINE [Suspect]
     Active Substance: CYTARABINE
     Dosage: MAINTENANCE
  7. VINCRISTINE SULFATE [Suspect]
     Active Substance: VINCRISTINE SULFATE
     Dosage: INDUCTION
     Dates: end: 20220412
  8. VINCRISTINE SULFATE [Suspect]
     Active Substance: VINCRISTINE SULFATE
     Dosage: MAINTENANCE
  9. CYCLOPHOSPHAMIDE [Suspect]
     Active Substance: CYCLOPHOSPHAMIDE
     Dosage: INDUCTION
     Dates: end: 20220412
  10. CYCLOPHOSPHAMIDE [Suspect]
     Active Substance: CYCLOPHOSPHAMIDE
     Dosage: MAINTENANCE
  11. PURINETHOL [Concomitant]
     Active Substance: MERCAPTOPURINE
     Dosage: 50 MG, DAILY, 5 DAYS OUT OF 7DAYS (MAINTENANCE)
     Route: 048
  12. ATOVAQUONE [Concomitant]
     Active Substance: ATOVAQUONE
     Indication: Infection prophylaxis
     Dosage: 750 MG, 2X/DAY
     Route: 048
     Dates: start: 20210720
  13. VALACYCLOVIR HYDROCHLORIDE [Concomitant]
     Active Substance: VALACYCLOVIR HYDROCHLORIDE
     Indication: Infection prophylaxis
     Dosage: 500 MG, DAILY
     Dates: start: 202011

REACTIONS (1)
  - Liver disorder [Not Recovered/Not Resolved]

NARRATIVE: CASE EVENT DATE: 20220420
